FAERS Safety Report 8514826-6 (Version None)
Quarter: 2012Q3

REPORT INFORMATION
  Report Type: 
  Country: None (occurrence: None)
  Receive Date: 20120717
  Receipt Date: 20120706
  Transmission Date: 20120928
  Serious: Yes (Disabling)
  Sender: FDA-Public Use
  Company Number: FR-BAXTER-2012BAX009630

PATIENT
  Sex: Female

DRUGS (15)
  1. RITUXIMAB [Concomitant]
     Dates: start: 20120524
  2. DOXORUBICIN HCL [Suspect]
     Route: 042
     Dates: start: 20120524
  3. PREDNISONE [Concomitant]
     Indication: B-CELL LYMPHOMA
     Dates: start: 20120426
  4. CYCLOPHOSPHAMIDE [Suspect]
     Route: 042
     Dates: start: 20120510
  5. VINCRISTINE [Suspect]
     Route: 042
     Dates: start: 20120510
  6. CYCLOPHOSPHAMIDE [Suspect]
     Route: 042
     Dates: start: 20120524, end: 20120524
  7. PREDNISONE [Concomitant]
     Dates: start: 20120524
  8. PREDNISONE [Concomitant]
     Dates: start: 20120510
  9. VINCRISTINE [Suspect]
     Indication: B-CELL LYMPHOMA
     Route: 042
     Dates: start: 20120426, end: 20120510
  10. RITUXIMAB [Concomitant]
     Dates: start: 20120510
  11. CYCLOPHOSPHAMIDE [Suspect]
     Indication: B-CELL LYMPHOMA
     Route: 042
     Dates: start: 20120426, end: 20120524
  12. DOXORUBICIN HCL [Suspect]
     Route: 042
     Dates: start: 20120510
  13. VINCRISTINE [Suspect]
     Route: 042
     Dates: start: 20120524, end: 20120524
  14. RITUXIMAB [Concomitant]
     Indication: B-CELL LYMPHOMA
     Dates: start: 20120426
  15. DOXORUBICIN HCL [Suspect]
     Indication: B-CELL LYMPHOMA
     Route: 042
     Dates: start: 20120426, end: 20120524

REACTIONS (2)
  - PARAESTHESIA [None]
  - PALMAR-PLANTAR ERYTHRODYSAESTHESIA SYNDROME [None]
